FAERS Safety Report 20369673 (Version 1)
Quarter: 2022Q1

REPORT INFORMATION
  Report Type: Spontaneous
  Country: US (occurrence: US)
  Receive Date: 20220124
  Receipt Date: 20220124
  Transmission Date: 20220423
  Serious: Yes (Other)
  Sender: FDA-Public Use
  Company Number: US-AMERICAN REGENT INC-2022000166

PATIENT
  Age: 29 Year
  Sex: Female

DRUGS (20)
  1. LIDOCAINE HYDROCHLORIDE [Suspect]
     Active Substance: LIDOCAINE HYDROCHLORIDE
     Indication: Cancer pain
     Dosage: LOADING DOSE OF 2 MG/KG
     Route: 042
  2. LIDOCAINE HYDROCHLORIDE [Suspect]
     Active Substance: LIDOCAINE HYDROCHLORIDE
     Dosage: CONTINUOUS INFUSION OF 1MG/KG/HOUR BASED ON IDEAL BODY WEIGHT
     Route: 042
  3. LIDOCAINE HYDROCHLORIDE [Suspect]
     Active Substance: LIDOCAINE HYDROCHLORIDE
     Dosage: TITRATED TO A MAXIMUM OF 1.6 MG/KG/HOUR
     Route: 042
  4. LIDOCAINE HYDROCHLORIDE [Suspect]
     Active Substance: LIDOCAINE HYDROCHLORIDE
     Dosage: DECREASED TO 1 MG/KG/HOUR
     Route: 042
  5. LIDOCAINE HYDROCHLORIDE [Suspect]
     Active Substance: LIDOCAINE HYDROCHLORIDE
     Dosage: UNK, WEANED
     Route: 042
  6. DEXAMETHASONE SODIUM PHOSPHATE [Suspect]
     Active Substance: DEXAMETHASONE SODIUM PHOSPHATE
     Indication: Spinal cord compression
     Dosage: 10 MILLIGRAM, Q AM
     Route: 042
  7. DEXAMETHASONE SODIUM PHOSPHATE [Suspect]
     Active Substance: DEXAMETHASONE SODIUM PHOSPHATE
     Indication: Pain
     Dosage: INCREASED TO 10 MILLIGRAM, Q8H
     Route: 042
  8. DEXAMETHASONE SODIUM PHOSPHATE [Suspect]
     Active Substance: DEXAMETHASONE SODIUM PHOSPHATE
     Dosage: 10 MILLIGRAM, QD, REDUCED TO ONCE DAILY DOSING
     Route: 042
  9. PACLITAXEL [Concomitant]
     Active Substance: PACLITAXEL
     Indication: Chemotherapy
     Dosage: UNK
     Route: 065
  10. HYDROMORPHONE [Concomitant]
     Active Substance: HYDROMORPHONE
     Indication: Cancer pain
     Dosage: UNK, PATIENT CONTROLLED ANALGESIA
  11. HYDROMORPHONE [Concomitant]
     Active Substance: HYDROMORPHONE
     Dosage: UPTITRATION OF PCA TO 2.5 MG Q10 MINUTES PRN (NO BASAL RATE)
  12. HYDROMORPHONE [Concomitant]
     Active Substance: HYDROMORPHONE
     Dosage: CONSTANT INFUSION (9.8 MG/DAY)
     Route: 037
  13. METHADONE [Concomitant]
     Active Substance: METHADONE HYDROCHLORIDE
     Indication: Cancer pain
     Dosage: 20/20/30 MG, TID
     Route: 048
  14. ACETAMINOPHEN [Concomitant]
     Active Substance: ACETAMINOPHEN
     Indication: Cancer pain
     Dosage: 1000 MG, Q8H
     Route: 048
  15. DULOXETINE [Concomitant]
     Active Substance: DULOXETINE
     Indication: Cancer pain
     Dosage: 60 MILLIGRAM, Q AM
     Route: 048
  16. METHOCARBAMOL [Concomitant]
     Active Substance: METHOCARBAMOL
     Indication: Cancer pain
     Dosage: 750 MILLIGRAM, QID
     Route: 048
  17. FENTANYL [Concomitant]
     Active Substance: FENTANYL
     Indication: Cancer pain
     Dosage: UP TO A 150 MCG, Q10 MINUTES PRN WITH A 25 MCG/HOUR BASAL RATE
  18. KETAMINE [Concomitant]
     Active Substance: KETAMINE
     Indication: Cancer pain
     Dosage: UNK THEN EVENTUALLY TITRATED UP TO 0.3 MG/KG/HOUR
     Route: 042
  19. KETAMINE [Concomitant]
     Active Substance: KETAMINE
     Dosage: DISCONTINUED ONE HOUR AFTER INITIATION OF PARENTERAL LIDOCAINE
  20. BUPIVACAINE [Concomitant]
     Active Substance: BUPIVACAINE
     Indication: Cancer pain
     Dosage: CONSTANT INFUSION (6.5 MG/DAY)
     Route: 037

REACTIONS (4)
  - Hoigne^s syndrome [Recovered/Resolved]
  - Hypoaesthesia oral [Unknown]
  - Delirium [Recovered/Resolved]
  - Product use in unapproved indication [Unknown]
